FAERS Safety Report 8221911-5 (Version None)
Quarter: 2012Q1

REPORT INFORMATION
  Report Type: 
  Country: None (occurrence: None)
  Receive Date: 20120320
  Receipt Date: 20120308
  Transmission Date: 20120608
  Serious: Yes (Hospitalization, Other)
  Sender: FDA-Public Use
  Company Number: US-JNJFOC-20120307066

PATIENT
  Sex: Male

DRUGS (7)
  1. REMERON [Concomitant]
     Indication: DEPRESSION
     Route: 065
     Dates: start: 20110101
  2. PERCOCET [Concomitant]
     Indication: BREAKTHROUGH PAIN
     Route: 048
     Dates: start: 20080101
  3. INFLIXIMAB [Suspect]
     Indication: CROHN'S DISEASE
     Route: 042
     Dates: start: 20110101, end: 20111201
  4. FENTANYL [Concomitant]
     Indication: PAIN
     Route: 062
     Dates: start: 20050101
  5. FENTANYL CITRATE [Concomitant]
     Indication: BACK PAIN
     Route: 062
     Dates: start: 20050101
  6. TRICOR [Concomitant]
     Indication: BLOOD CHOLESTEROL
     Route: 048
     Dates: start: 20050101
  7. METFORMIN HCL [Concomitant]
     Indication: TYPE 2 DIABETES MELLITUS
     Route: 048
     Dates: start: 20040101

REACTIONS (5)
  - MALNUTRITION [None]
  - RASH [None]
  - DECREASED APPETITE [None]
  - ABNORMAL LOSS OF WEIGHT [None]
  - INTESTINAL OBSTRUCTION [None]
